FAERS Safety Report 10659204 (Version 6)
Quarter: 2015Q2

REPORT INFORMATION
  Report Type: Report from Study
  Country: CA (occurrence: CA)
  Receive Date: 20141217
  Receipt Date: 20150428
  Transmission Date: 20150821
  Serious: Yes (Hospitalization, Other)
  Sender: FDA-Public Use
  Company Number: PHHY2014CA118862

PATIENT
  Age: 35 Year
  Sex: Male

DRUGS (2)
  1. SANDOSTATIN LAR DEPOT [Suspect]
     Active Substance: OCTREOTIDE ACETATE
     Indication: MENINGIOMA MALIGNANT
     Dosage: 30 MG, EVERY 4 WEEKS
     Route: 030
     Dates: start: 20140319, end: 2014
  2. SANDOSTATIN LAR DEPOT [Suspect]
     Active Substance: OCTREOTIDE ACETATE
     Dosage: 40 MG, EVERY 4 WEEKS
     Route: 030

REACTIONS (4)
  - Brain neoplasm [Unknown]
  - Exposure via father [Unknown]
  - Product use issue [Unknown]
  - Incision site complication [Unknown]

NARRATIVE: CASE EVENT DATE: 20140319
